FAERS Safety Report 12946733 (Version 1)
Quarter: 2016Q4

REPORT INFORMATION
  Report Type: Spontaneous
  Country: NL (occurrence: NL)
  Receive Date: 20161116
  Receipt Date: 20161116
  Transmission Date: 20170207
  Serious: Yes (Other)
  Sender: FDA-Public Use
  Company Number: NL-BAXTER-2016BAX057237

PATIENT
  Age: 48 Year
  Sex: Female
  Weight: 96 kg

DRUGS (6)
  1. PREDNISONE. [Suspect]
     Active Substance: PREDNISONE
     Indication: RENAL IMPAIRMENT
  2. ENDOXAN I.V., POEDER VOOR OPLOSSING VOOR INJECTIE 200, 500, 1000 MG [Suspect]
     Active Substance: CYCLOPHOSPHAMIDE
     Indication: RENAL IMPAIRMENT
  3. PREDNISONE. [Suspect]
     Active Substance: PREDNISONE
     Indication: ACUTE KIDNEY INJURY
     Route: 065
     Dates: start: 200901
  4. ENDOXAN I.V., POEDER VOOR OPLOSSING VOOR INJECTIE 200, 500, 1000 MG [Suspect]
     Active Substance: CYCLOPHOSPHAMIDE
     Indication: ACUTE KIDNEY INJURY
     Route: 065
     Dates: start: 200901
  5. PRIMOLUT [Concomitant]
     Indication: MENORRHAGIA
     Route: 065
     Dates: start: 200901
  6. FERROFUMARAAT [Concomitant]
     Indication: MENORRHAGIA
     Route: 065
     Dates: start: 200901

REACTIONS (5)
  - Menorrhagia [Unknown]
  - Blood count abnormal [Unknown]
  - Alopecia [Recovered/Resolved]
  - Drug ineffective [Recovered/Resolved]
  - Platelet count decreased [Unknown]

NARRATIVE: CASE EVENT DATE: 200901
